FAERS Safety Report 16732971 (Version 1)
Quarter: 2019Q3

REPORT INFORMATION
  Report Type: Report from Study
  Country: CA (occurrence: CA)
  Receive Date: 20190823
  Receipt Date: 20190823
  Transmission Date: 20191005
  Serious: Yes (Hospitalization, Other)
  Sender: FDA-Public Use
  Company Number: CA-ROCHE-2386619

PATIENT
  Age: 45 Year
  Sex: Male

DRUGS (17)
  1. CALCIUM [Concomitant]
     Active Substance: CALCIUM
     Route: 065
  2. POLYETHYLENE GLYCOL [Concomitant]
     Active Substance: POLYETHYLENE GLYCOLS
     Route: 065
  3. TRAZODONE [Concomitant]
     Active Substance: TRAZODONE HYDROCHLORIDE
     Route: 065
  4. METHYLCELLULOSE [Concomitant]
     Active Substance: METHYLCELLULOSES
     Indication: DRY EYE
     Route: 065
  5. RITUXAN [Suspect]
     Active Substance: RITUXIMAB
     Indication: CHRONIC INFLAMMATORY DEMYELINATING POLYRADICULONEUROPATHY
     Route: 042
     Dates: start: 201902
  6. DOCUSATE SODIUM. [Concomitant]
     Active Substance: DOCUSATE SODIUM
     Route: 065
  7. GABAPENTIN. [Concomitant]
     Active Substance: GABAPENTIN
     Route: 048
  8. MELATONIN [Concomitant]
     Active Substance: MELATONIN
     Route: 065
  9. PREDNISONE. [Suspect]
     Active Substance: PREDNISONE
     Indication: PRODUCT USED FOR UNKNOWN INDICATION
     Route: 048
  10. AZATHIOPRINE. [Concomitant]
     Active Substance: AZATHIOPRINE
     Route: 048
  11. PANTOPRAZOLE [Concomitant]
     Active Substance: PANTOPRAZOLE
     Route: 065
  12. VIT D [Concomitant]
     Active Substance: VITAMIN D NOS
     Route: 065
  13. EFINACONAZOLE [Concomitant]
     Active Substance: EFINACONAZOLE
     Route: 065
  14. CO-TRIMOXAZOLE DS [Concomitant]
     Route: 065
  15. ESCITALOPRAM [Concomitant]
     Active Substance: ESCITALOPRAM OXALATE
     Route: 065
  16. ALENDRONATE [Concomitant]
     Active Substance: ALENDRONATE SODIUM
     Route: 065
  17. ATORVASTATIN [Concomitant]
     Active Substance: ATORVASTATIN
     Route: 065

REACTIONS (19)
  - Blood potassium decreased [Unknown]
  - High density lipoprotein increased [Unknown]
  - Paraesthesia [Unknown]
  - Cushingoid [Unknown]
  - Low density lipoprotein increased [Unknown]
  - Herpes zoster [Recovered/Resolved]
  - Chronic inflammatory demyelinating polyradiculoneuropathy [Unknown]
  - Muscle atrophy [Unknown]
  - Weight increased [Unknown]
  - Hypoaesthesia [Unknown]
  - Muscular weakness [Recovering/Resolving]
  - Glycosylated haemoglobin increased [Unknown]
  - Blepharitis [Unknown]
  - Musculoskeletal discomfort [Unknown]
  - Muscular weakness [Not Recovered/Not Resolved]
  - Fluid retention [Unknown]
  - Dry eye [Unknown]
  - Amyotrophy [Unknown]
  - Blood triglycerides increased [Unknown]

NARRATIVE: CASE EVENT DATE: 201903
